FAERS Safety Report 13726546 (Version 1)
Quarter: 2017Q3

REPORT INFORMATION
  Report Type: Spontaneous
  Country: US (occurrence: US)
  Receive Date: 20170706
  Receipt Date: 20170706
  Transmission Date: 20171127
  Serious: Yes (Other)
  Sender: FDA-Public Use
  Company Number: US-TEVA-782526USA

PATIENT
  Age: 91 Year
  Sex: Female

DRUGS (3)
  1. QVAR [Suspect]
     Active Substance: BECLOMETHASONE DIPROPIONATE
     Indication: ASTHMA
     Route: 065
  2. LISINOPRIL. [Concomitant]
     Active Substance: LISINOPRIL
  3. LISINOPRIL. [Concomitant]
     Active Substance: LISINOPRIL
     Indication: ASTHMA

REACTIONS (1)
  - Cardiac failure [Not Recovered/Not Resolved]
